FAERS Safety Report 6760106-9 (Version None)
Quarter: 2010Q2

REPORT INFORMATION
  Report Type: 
  Country: None (occurrence: None)
  Receive Date: 20100524
  Receipt Date: 20100127
  Transmission Date: 20101027
  Serious: No
  Sender: FDA-Public Use
  Company Number: 8053877

PATIENT
  Sex: Male

DRUGS (1)
  1. CERTOLIZUMAB PEGOL (UCB, INC.) [Suspect]
     Dosage: (200 MG X/2 WEEKS SUBCUTANEOUS)
     Route: 058
     Dates: start: 20090404

REACTIONS (2)
  - ARTHRALGIA [None]
  - BACK PAIN [None]
